FAERS Safety Report 19666697 (Version 1)
Quarter: 2021Q3

REPORT INFORMATION
  Report Type: Spontaneous
  Country: US (occurrence: US)
  Receive Date: 20210806
  Receipt Date: 20210806
  Transmission Date: 20211014
  Serious: Yes (Disabling)
  Sender: FDA-Public Use
  Company Number: None

PATIENT
  Age: 6 Year
  Sex: Male
  Weight: 31.37 kg

DRUGS (26)
  1. ACETAMINOPHEN 325 MG [Suspect]
     Active Substance: ACETAMINOPHEN
     Indication: PAIN
     Dosage: ?          QUANTITY:100 TABLET(S);OTHER ROUTE:G/J TUBE?
     Dates: start: 20210520, end: 20210804
  2. LEVETIRACETAM. [Concomitant]
     Active Substance: LEVETIRACETAM
  3. FYCOMPA [Concomitant]
     Active Substance: PERAMPANEL
  4. MIDAZOLAM. [Concomitant]
     Active Substance: MIDAZOLAM
  5. LORAZEPAM. [Concomitant]
     Active Substance: LORAZEPAM
  6. VASELINE PREBIOTICS/PROBIOTICS DIGESTIVE ENZYME [Concomitant]
  7. YL MIGHTYPRO [Concomitant]
  8. CLOBAZAM. [Concomitant]
     Active Substance: CLOBAZAM
  9. PHENOBARBITAL. [Concomitant]
     Active Substance: PHENOBARBITAL
  10. IBUPROFEN. [Concomitant]
     Active Substance: IBUPROFEN
  11. VIGABATRIN. [Concomitant]
     Active Substance: VIGABATRIN
  12. NANO VM [Concomitant]
  13. SENNA [Concomitant]
     Active Substance: SENNA LEAF\SENNOSIDES\SENNOSIDES A AND B
  14. MIRALAX [Concomitant]
     Active Substance: POLYETHYLENE GLYCOL 3350
  15. FERROUS SULFATE. [Concomitant]
     Active Substance: FERROUS SULFATE
  16. YL MIGHTYZYME [Concomitant]
  17. MULTI?VITAMIN [Concomitant]
     Active Substance: .ALPHA.-TOCOPHEROL ACETATE, DL-\ASCORBIC ACID\CYANOCOBALAMIN\FLUORIDE ION\FOLIC ACID\NIACIN\PYRIDOXINE\RIBOFLAVIN\THIAMINE\VITAMIN A\VITAMIN D
  18. PREVACID [Concomitant]
     Active Substance: LANSOPRAZOLE
  19. ERYTHROMYCIN?SULFISOXAZOLE [Concomitant]
     Active Substance: ERYTHROMYCIN ETHYLSUCCINATE\SULFISOXAZOLE ACETYL
  20. VITAMIN D3 [Concomitant]
     Active Substance: CHOLECALCIFEROL
  21. CULTURELLE [Concomitant]
     Active Substance: LACTOBACILLUS RHAMNOSUS
  22. ACETAMINOPHEN 325 MG [Suspect]
     Active Substance: ACETAMINOPHEN
     Indication: PYREXIA
     Dosage: ?          QUANTITY:100 TABLET(S);OTHER ROUTE:G/J TUBE?
     Dates: start: 20210520, end: 20210804
  23. OXYGEN. [Concomitant]
     Active Substance: OXYGEN
  24. DIAZEPAM. [Concomitant]
     Active Substance: DIAZEPAM
  25. MAGNESIUM [Concomitant]
     Active Substance: MAGNESIUM
  26. VITAMIN C [Concomitant]
     Active Substance: ASCORBIC ACID

REACTIONS (1)
  - Seizure [None]

NARRATIVE: CASE EVENT DATE: 20210525
